FAERS Safety Report 23782387 (Version 2)
Quarter: 2024Q2

REPORT INFORMATION
  Report Type: Spontaneous
  Country: SE (occurrence: SE)
  Receive Date: 20240425
  Receipt Date: 20240508
  Transmission Date: 20240716
  Serious: Yes (Other)
  Sender: FDA-Public Use
  Company Number: SE-AMGEN-SWESP2024078990

PATIENT

DRUGS (2)
  1. ADALIMUMAB [Suspect]
     Active Substance: ADALIMUMAB\ISOPROPYL ALCOHOL
     Indication: Rheumatic disorder
     Dosage: UNK
     Route: 065
  2. COVID-19 vaccine [Concomitant]
     Route: 065

REACTIONS (5)
  - Rheumatic disorder [Unknown]
  - Myalgia [Unknown]
  - Fatigue [Unknown]
  - Injection site pain [Unknown]
  - Headache [Unknown]
